FAERS Safety Report 9057351 (Version 1)
Quarter: 2013Q1

REPORT INFORMATION
  Report Type: Spontaneous
  Country: BR (occurrence: BR)
  Receive Date: 20130204
  Receipt Date: 20130204
  Transmission Date: 20140127
  Serious: Yes (Other)
  Sender: FDA-Public Use
  Company Number: PHHY2013BR009273

PATIENT
  Age: 61 Year
  Sex: Female
  Weight: 67 kg

DRUGS (4)
  1. SIMVASTATIN [Suspect]
     Indication: BLOOD CHOLESTEROL INCREASED
     Dosage: UNK UKN, UNK
     Route: 048
     Dates: end: 2002
  2. ATENOL [Concomitant]
     Indication: HYPERTENSION
     Dosage: 2 DF, UNK
     Route: 048
     Dates: start: 2000
  3. ATENOL [Concomitant]
     Indication: ARRHYTHMIA
  4. ATACAND [Concomitant]
     Indication: HYPERTENSION
     Dosage: 1 DF, UNK
     Dates: start: 2002

REACTIONS (2)
  - Arterial occlusive disease [Recovered/Resolved]
  - Drug ineffective [Recovered/Resolved]
